FAERS Safety Report 12766993 (Version 1)
Quarter: 2016Q3

REPORT INFORMATION
  Report Type: Report from Study
  Country: CA (occurrence: CA)
  Receive Date: 20160921
  Receipt Date: 20160921
  Transmission Date: 20161109
  Serious: Yes (Hospitalization)
  Sender: FDA-Public Use
  Company Number: CA-JNJFOC-20160914749

PATIENT
  Age: 78 Year
  Sex: Male
  Weight: 72 kg

DRUGS (3)
  1. REMICADE [Suspect]
     Active Substance: INFLIXIMAB
     Indication: CROHN^S DISEASE
     Route: 042
     Dates: start: 20160914
  2. REMICADE [Suspect]
     Active Substance: INFLIXIMAB
     Indication: CROHN^S DISEASE
     Route: 042
     Dates: start: 20160720
  3. REMICADE [Suspect]
     Active Substance: INFLIXIMAB
     Indication: CROHN^S DISEASE
     Route: 042
     Dates: start: 201407

REACTIONS (4)
  - Infusion related reaction [Recovered/Resolved]
  - Chest pain [Unknown]
  - Flushing [Recovered/Resolved]
  - Scleral hyperaemia [Recovered/Resolved]

NARRATIVE: CASE EVENT DATE: 20160914
